FAERS Safety Report 9831537 (Version 1)
Quarter: 2014Q1

REPORT INFORMATION
  Report Type: Spontaneous
  Country: JP (occurrence: JP)
  Receive Date: 20140121
  Receipt Date: 20140121
  Transmission Date: 20141002
  Serious: Yes (Other)
  Sender: FDA-Public Use
  Company Number: JP-SA-2014SA006513

PATIENT
  Age: 9 Year
  Sex: Male

DRUGS (2)
  1. DANAZOL [Suspect]
     Indication: APLASTIC ANAEMIA
     Route: 065
  2. PREDNISOLONE [Concomitant]

REACTIONS (5)
  - Hepatic fibrosis [Unknown]
  - Off label use [Unknown]
  - Aspartate aminotransferase increased [Unknown]
  - Alanine aminotransferase increased [Unknown]
  - Hepatic vein thrombosis [Unknown]
